FAERS Safety Report 24640730 (Version 2)
Quarter: 2025Q1

REPORT INFORMATION
  Report Type: Spontaneous
  Country: JP (occurrence: JP)
  Receive Date: 20241120
  Receipt Date: 20250224
  Transmission Date: 20250409
  Serious: Yes (Death, Hospitalization)
  Sender: SANOFI AVENTIS
  Company Number: JP-SA-2024SA337760

PATIENT
  Sex: Female

DRUGS (1)
  1. REZUROCK [Suspect]
     Active Substance: BELUMOSUDIL
     Dosage: 200 MG, QD
     Route: 048

REACTIONS (1)
  - Disease progression [Fatal]
